FAERS Safety Report 19508520 (Version 1)
Quarter: 2021Q3

REPORT INFORMATION
  Report Type: Spontaneous
  Country: TR (occurrence: TR)
  Receive Date: 20210708
  Receipt Date: 20210708
  Transmission Date: 20211014
  Serious: Yes (Other)
  Sender: FDA-Public Use
  Company Number: TR-ASTRAZENECA-2021A600778

PATIENT
  Age: 40 Year
  Sex: Female

DRUGS (10)
  1. REAMPLA [Suspect]
     Active Substance: PALBOCICLIB
     Indication: BREAST CANCER METASTATIC
     Dosage: (1X1 3/1 WEEK)
     Route: 048
     Dates: start: 20210111, end: 20210208
  2. VINORELBINE [Concomitant]
     Active Substance: VINORELBINE TARTRATE
     Indication: BREAST CANCER
     Dates: start: 20161025
  3. CYCLOPHOSPHAMIDE. [Concomitant]
     Active Substance: CYCLOPHOSPHAMIDE
     Indication: BREAST CANCER
  4. LETROZOLE. [Concomitant]
     Active Substance: LETROZOLE
     Indication: BREAST CANCER
     Dates: start: 20180502
  5. GEMCITABINE. [Concomitant]
     Active Substance: GEMCITABINE
     Indication: BREAST CANCER
     Dates: start: 20161025
  6. ZOLEDRONIC ACID [Concomitant]
     Active Substance: ZOLEDRONIC ACID
     Indication: BREAST CANCER
     Dates: start: 20161025
  7. BONDRONAT [Concomitant]
     Active Substance: IBANDRONATE SODIUM
     Dates: start: 20180502
  8. ADRIAMYCIN [Concomitant]
     Active Substance: DOXORUBICIN HYDROCHLORIDE
     Indication: BREAST CANCER
  9. FASLODEX [Suspect]
     Active Substance: FULVESTRANT
     Indication: BREAST CANCER METASTATIC
     Dosage: CYCLIC (EVERY 28 DAYS)
     Route: 030
  10. TAMOXIFEN [Concomitant]
     Active Substance: TAMOXIFEN
     Dates: start: 201408

REACTIONS (4)
  - Neutropenia [Unknown]
  - Arrhythmia [Unknown]
  - White blood cell count decreased [Unknown]
  - Neoplasm recurrence [Unknown]

NARRATIVE: CASE EVENT DATE: 20210111
